FAERS Safety Report 8246232-6 (Version None)
Quarter: 2012Q1

REPORT INFORMATION
  Report Type: 
  Country: None (occurrence: None)
  Receive Date: 20120330
  Receipt Date: 20101028
  Transmission Date: 20120608
  Serious: No
  Sender: FDA-Public Use
  Company Number: US-MYLANLABS-2010S1017417

PATIENT
  Age: 46 Year
  Sex: Male
  Weight: 128.82 kg

DRUGS (1)
  1. ALBUTEROL SULATE [Suspect]
     Indication: ASTHMA
     Route: 055
     Dates: start: 20091201, end: 20091201

REACTIONS (3)
  - DYSPNOEA [None]
  - BURNING SENSATION [None]
  - HEADACHE [None]
